FAERS Safety Report 17025957 (Version 2)
Quarter: 2019Q4

REPORT INFORMATION
  Report Type: Spontaneous
  Country: US (occurrence: US)
  Receive Date: 20191113
  Receipt Date: 20191212
  Transmission Date: 20200122
  Serious: Yes (Hospitalization, Other)
  Sender: FDA-Public Use
  Company Number: US-PFIZER INC-2019484679

PATIENT
  Age: 59 Year
  Sex: Male
  Weight: 48.99 kg

DRUGS (1)
  1. DILANTIN [Suspect]
     Active Substance: PHENYTOIN
     Indication: SEIZURE
     Dosage: UNK

REACTIONS (8)
  - Seizure [Unknown]
  - Fall [Unknown]
  - Drug level decreased [Unknown]
  - Stress fracture [Unknown]
  - Drug level increased [Unknown]
  - Loss of consciousness [Unknown]
  - Facial bones fracture [Unknown]
  - Lip injury [Unknown]

NARRATIVE: CASE EVENT DATE: 201910
